FAERS Safety Report 4961698-2 (Version None)
Quarter: 2006Q2

REPORT INFORMATION
  Report Type: 
  Country: None (occurrence: None)
  Receive Date: 20060404
  Receipt Date: 20060320
  Transmission Date: 20061013
  Serious: Yes (Other)
  Sender: FDA-Public Use
  Company Number: DEWYE492021MAR06

PATIENT
  Age: 19 Year
  Sex: Male
  Weight: 59 kg

DRUGS (2)
  1. ENBREL [Suspect]
     Indication: JUVENILE ARTHRITIS
     Route: 058
     Dates: start: 20020207
  2. ENBREL [Suspect]
     Indication: POLYARTHRITIS

REACTIONS (1)
  - IRIDOCYCLITIS [None]
